FAERS Safety Report 4366840-2 (Version None)
Quarter: 2004Q2

REPORT INFORMATION
  Report Type: 
  Country: None (occurrence: None)
  Receive Date: 20040528
  Receipt Date: 20031203
  Transmission Date: 20050107
  Serious: No
  Sender: FDA-Public Use
  Company Number: US-GLAXOSMITHKLINE-A0441768A

PATIENT

DRUGS (2)
  1. BACTROBAN [Suspect]
     Indication: ILL-DEFINED DISORDER
     Route: 065
  2. BACTROBAN [Suspect]
     Route: 065

REACTIONS (2)
  - HYPERSENSITIVITY [None]
  - RASH [None]
